FAERS Safety Report 17623452 (Version 1)
Quarter: 2020Q2

REPORT INFORMATION
  Report Type: Spontaneous
  Country: US (occurrence: US)
  Receive Date: 20200403
  Receipt Date: 20200403
  Transmission Date: 20200713
  Serious: Yes (Hospitalization, Other)
  Sender: FDA-Public Use
  Company Number: US-ABBVIE-20K-163-3349567-00

PATIENT
  Age: 67 Year
  Sex: Male
  Weight: 95.25 kg

DRUGS (3)
  1. AMLODIPINE [Concomitant]
     Active Substance: AMLODIPINE BESYLATE
     Indication: BLOOD PRESSURE MEASUREMENT
  2. IMBRUVICA [Suspect]
     Active Substance: IBRUTINIB
     Indication: WALDENSTROM^S MACROGLOBULINAEMIA
     Route: 048
     Dates: start: 201609, end: 20200225
  3. METOPROLOL. [Concomitant]
     Active Substance: METOPROLOL
     Indication: BLOOD PRESSURE MEASUREMENT

REACTIONS (7)
  - Aortic dissection [Recovered/Resolved]
  - Prostate cancer [Not Recovered/Not Resolved]
  - Nephrolithiasis [Unknown]
  - Prostatomegaly [Not Recovered/Not Resolved]
  - Congenital cystic kidney disease [Unknown]
  - Unevaluable event [Unknown]
  - Atrial fibrillation [Unknown]

NARRATIVE: CASE EVENT DATE: 201707
